FAERS Safety Report 4963173-8 (Version None)
Quarter: 2006Q1

REPORT INFORMATION
  Report Type: 
  Country: None (occurrence: None)
  Receive Date: 20060331
  Receipt Date: 20060315
  Transmission Date: 20060701
  Serious: Yes (Other)
  Sender: FDA-Public Use
  Company Number: 430005N06USA

PATIENT
  Age: 56 Year
  Sex: Female
  Weight: 52 kg

DRUGS (6)
  1. NOVANTRONE [Suspect]
     Indication: MULTIPLE SCLEROSIS
     Dosage: 5 MG/M2, 1 IN 3 MONTHS, INTRAVENOUS
     Route: 042
     Dates: start: 20020816
  2. LEVOTHYROXINE SODIUM [Concomitant]
  3. RISEDRONATE SODIUM [Concomitant]
  4. ALENDRONATE SODIUM [Concomitant]
  5. CALCIUM CARBONATE [Concomitant]
  6. CARBAMAZEPINE [Concomitant]

REACTIONS (1)
  - BASAL CELL CARCINOMA [None]
